FAERS Safety Report 6938550-6 (Version None)
Quarter: 2010Q3

REPORT INFORMATION
  Report Type: 
  Country: None (occurrence: None)
  Receive Date: 20100824
  Receipt Date: 20100811
  Transmission Date: 20110219
  Serious: Yes (Hospitalization)
  Sender: FDA-Public Use
  Company Number: US-ELI_LILLY_AND_COMPANY-US201002003792

PATIENT
  Sex: Male

DRUGS (4)
  1. FORTEO [Suspect]
     Indication: OSTEOPOROSIS
     Dosage: 20 UG, DAILY (1/D)
     Dates: end: 20100707
  2. BYETTA [Concomitant]
     Indication: DIABETES MELLITUS
     Dosage: UNK, UNK
     Dates: start: 20090101
  3. COUMADIN [Concomitant]
  4. ANTIHYPERTENSIVES [Concomitant]

REACTIONS (4)
  - ANKLE FRACTURE [None]
  - MUSCULAR WEAKNESS [None]
  - RENAL DISORDER [None]
  - WALKING AID USER [None]
